FAERS Safety Report 10102301 (Version 1)
Quarter: 2014Q2

REPORT INFORMATION
  Report Type: Spontaneous
  Country: US (occurrence: US)
  Receive Date: 20140424
  Receipt Date: 20140424
  Transmission Date: 20141212
  Serious: No
  Sender: FDA-Public Use
  Company Number: US-009507513-1403USA006026

PATIENT
  Age: 90 Year
  Sex: Male

DRUGS (2)
  1. MIRALAX [Suspect]
     Indication: PRODUCT USED FOR UNKNOWN INDICATION
     Dosage: UNK, QD
     Route: 048
  2. MIRALAX [Suspect]
     Dosage: UNK, QOD
     Route: 048

REACTIONS (2)
  - Diarrhoea [Unknown]
  - Inappropriate schedule of drug administration [Unknown]
